FAERS Safety Report 6180080-6 (Version None)
Quarter: 2009Q2

REPORT INFORMATION
  Report Type: 
  Country: None (occurrence: None)
  Receive Date: 20090505
  Receipt Date: 20080317
  Transmission Date: 20091009
  Serious: No
  Sender: FDA-Public Use
  Company Number: US-BAYER-200811587BCC

PATIENT
  Sex: Female

DRUGS (2)
  1. FINACEA [Suspect]
     Indication: ROSACEA
     Dosage: 15% IN 50 G TUBE THIN LAYER GENTLY MASSAGED INTO AFFECTED AREA ON FACE TWICE DAILY
     Route: 003
  2. FINACEA [Suspect]
     Dosage: 15% IN 50 G TUBE THIN LAYER GENTLY MASSAGED INTO AFFECTED AREA ON FACE TWICE DAILY
     Route: 003

REACTIONS (3)
  - AFFECT LABILITY [None]
  - ROSACEA [None]
  - SKIN DISORDER [None]
